FAERS Safety Report 19076963 (Version 1)
Quarter: 2021Q1

REPORT INFORMATION
  Report Type: Spontaneous
  Country: US (occurrence: US)
  Receive Date: 20210330
  Receipt Date: 20210330
  Transmission Date: 20210420
  Serious: Yes (Hospitalization)
  Sender: FDA-Public Use
  Company Number: None

PATIENT
  Age: 27 Year
  Sex: Female
  Weight: 56.25 kg

DRUGS (1)
  1. EMGALITY [Suspect]
     Active Substance: GALCANEZUMAB-GNLM
     Indication: MIGRAINE
     Dates: start: 20210222, end: 20210322

REACTIONS (5)
  - Dizziness [None]
  - Anxiety [None]
  - Nausea [None]
  - Heart rate increased [None]
  - Paraesthesia [None]

NARRATIVE: CASE EVENT DATE: 20210322
